FAERS Safety Report 9341762 (Version 2)
Quarter: 2013Q2

REPORT INFORMATION
  Report Type: Spontaneous
  Country: US (occurrence: None)
  Receive Date: 20130606
  Receipt Date: 20130619
  Transmission Date: 20140414
  Serious: Yes (Death)
  Sender: FDA-Public Use
  Company Number: 2013-222

PATIENT
  Age: 41 Year
  Sex: Male

DRUGS (25)
  1. CLOZAPINE [Suspect]
     Indication: SCHIZOAFFECTIVE DISORDER BIPOLAR TYPE
     Dosage: 50-350 MG, QD, PO
     Route: 048
     Dates: start: 20121206, end: 20130414
  2. CLOZAPINE [Suspect]
     Dosage: 50-350 MG, QD, PO
     Route: 048
     Dates: start: 20121206, end: 20130414
  3. ATIVAN (LORAZEPAM) [Concomitant]
  4. DIPHENHYDRAMINE HCL (DIPHENHYDRAMINE HYDROCHLORIDE) [Concomitant]
  5. CHLORPROMAZINE (CHLORPROMAZINE HYDROCHLORIDE) [Concomitant]
  6. HALOPERIDOL (HALOPERIDOL LACTATE) [Concomitant]
  7. HYDROXYZINE HCL (HYDROXYZINE HYDROCHLORIDE) [Concomitant]
  8. DIVALPROEX SODIUM (VALPROATE SEMISODIUM) [Concomitant]
  9. BENZTROPINE MESYLATE [Concomitant]
  10. CLONAZEPAM (CLONAZEPAM) (CLONAZEPAM) [Concomitant]
  11. ZYPREXA (OLANZAPINE) [Concomitant]
  12. METOPROLOL (METOPROLOL TARTRATE) [Concomitant]
  13. MINTOX (ALUMINIUM HYDROXIDE, MAGNESIUM HYDROXIDE) [Concomitant]
  14. MILK OF MAGNESIA [Concomitant]
  15. IBUPROFEN (IBUPROFEN) [Concomitant]
  16. ACETAMINOPHEN (PARACETAMOL) [Concomitant]
  17. ABILIFY (ARIPIPRAZOLE) [Concomitant]
  18. GEODON -(ZIPRASIDONE HYDROCHLORIDE) [Concomitant]
  19. VALPROIC ACID (VALPROIC ACID) [Concomitant]
  20. TEGRETOL (CARBAMAZEPINE) [Concomitant]
  21. THERA-M (FOLIC ACID, MINERALS NOS, VITAMINS NOS) [Concomitant]
  22. COGENTIN (BENZATROPINE MESILATE) [Concomitant]
  23. TOPAMAX (TOPIRAMATE) [Concomitant]
  24. ZOLPIDEM (ZOLPIDEM TARTRATE) [Concomitant]
  25. FERROUS FUMARATE (FERROUS FUMARATE) [Concomitant]

REACTIONS (4)
  - Aspiration [None]
  - Choking [None]
  - Hypoxic-ischaemic encephalopathy [None]
  - Treatment noncompliance [None]
